FAERS Safety Report 5297747-4 (Version None)
Quarter: 2007Q2

REPORT INFORMATION
  Report Type: 
  Country: None (occurrence: None)
  Receive Date: 20070412
  Receipt Date: 20070412
  Transmission Date: 20071010
  Serious: Yes (Other)
  Sender: FDA-Public Use
  Company Number: None

PATIENT
  Sex: Male
  Weight: 70.7611 kg

DRUGS (2)
  1. MAGNEVIST [Suspect]
     Indication: NUCLEAR MAGNETIC RESONANCE IMAGING
     Dosage: 20ML 2ML/SEC IV BOLUS
     Route: 040
     Dates: start: 20061216, end: 20061216
  2. MAGNEVIST [Suspect]
     Indication: NUCLEAR MAGNETIC RESONANCE IMAGING
     Dosage: 14ML HAND INJECTION IV
     Route: 042
     Dates: start: 20051208, end: 20051208

REACTIONS (2)
  - DIALYSIS [None]
  - NEPHROGENIC FIBROSING DERMOPATHY [None]
